FAERS Safety Report 22627718 (Version 5)
Quarter: 2025Q3

REPORT INFORMATION
  Report Type: Report from Study
  Country: CA (occurrence: CA)
  Receive Date: 20230622
  Receipt Date: 20250924
  Transmission Date: 20251021
  Serious: Yes (Other)
  Sender: CELLTRION
  Company Number: CA-CELLTRION INC.-2023CA012389

PATIENT

DRUGS (32)
  1. RITUXIMAB [Suspect]
     Active Substance: RITUXIMAB
     Indication: Interstitial lung disease
     Route: 042
  2. RITUXIMAB [Suspect]
     Active Substance: RITUXIMAB
     Route: 042
  3. RITUXIMAB [Suspect]
     Active Substance: RITUXIMAB
     Route: 042
  4. RITUXIMAB [Suspect]
     Active Substance: RITUXIMAB
     Route: 042
  5. RITUXIMAB [Suspect]
     Active Substance: RITUXIMAB
     Route: 042
  6. RITUXIMAB [Suspect]
     Active Substance: RITUXIMAB
     Route: 042
  7. RITUXIMAB [Suspect]
     Active Substance: RITUXIMAB
     Route: 042
  8. RITUXIMAB [Suspect]
     Active Substance: RITUXIMAB
     Route: 042
  9. RITUXIMAB [Suspect]
     Active Substance: RITUXIMAB
     Route: 042
  10. RITUXIMAB [Suspect]
     Active Substance: RITUXIMAB
     Route: 042
  11. RITUXIMAB [Suspect]
     Active Substance: RITUXIMAB
     Route: 042
  12. ASPIRIN [Concomitant]
     Active Substance: ASPIRIN
  13. AZATHIOPRINE [Concomitant]
     Active Substance: AZATHIOPRINE
  14. BENADRYL [Concomitant]
     Active Substance: DIPHENHYDRAMINE HYDROCHLORIDE
     Indication: Premedication
     Route: 048
  15. CALCITRIOL [Concomitant]
     Active Substance: CALCITRIOL
  16. HYDROXYCHLOROQUINE SULFATE [Concomitant]
     Active Substance: HYDROXYCHLOROQUINE SULFATE
  17. INSULIN HUMAN [Concomitant]
     Active Substance: INSULIN HUMAN
  18. IRON [Concomitant]
     Active Substance: IRON
     Indication: Anaemia
  19. MAGNESIUM [Concomitant]
     Active Substance: MAGNESIUM
  20. METHOTREXATE [Concomitant]
     Active Substance: METHOTREXATE
  21. METHYLPREDNISOLONE SODIUM SUCCINATE [Concomitant]
     Active Substance: METHYLPREDNISOLONE SODIUM SUCCINATE
     Indication: Premedication
     Route: 042
  22. METOCLOPRAMIDE [Concomitant]
     Active Substance: METOCLOPRAMIDE
  23. POTASSIUM [Concomitant]
     Active Substance: POTASSIUM
  24. PREDNISONE [Concomitant]
     Active Substance: PREDNISONE
  25. PREDNISONE [Concomitant]
     Active Substance: PREDNISONE
  26. PREDNISONE [Concomitant]
     Active Substance: PREDNISONE
  27. RAMIPRIL [Concomitant]
     Active Substance: RAMIPRIL
  28. RISEDRONATE SODIUM [Concomitant]
     Active Substance: RISEDRONATE SODIUM
  29. ROSUVASTATIN [Concomitant]
     Active Substance: ROSUVASTATIN
  30. SAXAGLIPTIN [Concomitant]
     Active Substance: SAXAGLIPTIN
  31. TYLENOL [Concomitant]
     Active Substance: ACETAMINOPHEN
     Indication: Premedication
     Route: 048
  32. GLUCOPHAGE [Concomitant]
     Active Substance: METFORMIN HYDROCHLORIDE

REACTIONS (14)
  - Breast cancer [Unknown]
  - Blood pressure diastolic abnormal [Unknown]
  - Blood pressure diastolic decreased [Unknown]
  - Blood pressure systolic abnormal [Unknown]
  - Blood pressure systolic increased [Unknown]
  - Dyspnoea exertional [Unknown]
  - Oxygen saturation decreased [Unknown]
  - Respiratory disorder [Unknown]
  - Blood pressure fluctuation [Unknown]
  - Heart rate increased [Unknown]
  - Weight decreased [Unknown]
  - Interstitial lung disease [Unknown]
  - Off label use [Unknown]
  - Intentional product use issue [Unknown]
